FAERS Safety Report 21006411 (Version 1)
Quarter: 2022Q2

REPORT INFORMATION
  Report Type: Spontaneous
  Country: US (occurrence: US)
  Receive Date: 20220624
  Receipt Date: 20220624
  Transmission Date: 20220721
  Serious: Yes (Hospitalization, Other)
  Sender: FDA-Public Use
  Company Number: US-BAYER-2022A084161

PATIENT
  Age: 83 Year
  Sex: Female
  Weight: 99.34 kg

DRUGS (13)
  1. ASPIRIN [Suspect]
     Active Substance: ASPIRIN
     Dosage: UNK UNK, TID
  2. IBUPROFEN [Concomitant]
     Active Substance: IBUPROFEN
  3. CALAN [Concomitant]
     Active Substance: VERAPAMIL HYDROCHLORIDE
     Indication: Blood pressure measurement
     Dosage: 120 MG, BID
  4. SYNTHROID [Concomitant]
     Active Substance: LEVOTHYROXINE SODIUM
     Dosage: 112 MCG
  5. ATENOLOL [Concomitant]
     Active Substance: ATENOLOL
  6. VALIUM [Concomitant]
     Active Substance: DIAZEPAM
     Dosage: 5 MG
  7. FUROSEMIDE [Concomitant]
     Active Substance: FUROSEMIDE
  8. POTASSIUM [Concomitant]
     Active Substance: POTASSIUM
  9. VITAMIN D3 [Concomitant]
     Active Substance: CHOLECALCIFEROL
     Dosage: 2000 IU, QD
  10. ASCORBIC ACID [Concomitant]
     Active Substance: ASCORBIC ACID
     Dosage: 500 MG, QD
  11. FAMOTIDINE [Concomitant]
     Active Substance: FAMOTIDINE
     Dosage: 40 MG, QD
  12. DIPHENHYDRAMINE HYDROCHLORIDE [Concomitant]
     Active Substance: DIPHENHYDRAMINE HYDROCHLORIDE
  13. EPIPEN [Concomitant]
     Active Substance: EPINEPHRINE

REACTIONS (2)
  - Haematemesis [Unknown]
  - Contraindicated product administered [None]
